FAERS Safety Report 9969390 (Version 2)
Quarter: 2014Q1

REPORT INFORMATION
  Report Type: Spontaneous
  Country: US (occurrence: US)
  Receive Date: 20140306
  Receipt Date: 20140306
  Transmission Date: 20141002
  Serious: Yes (Other)
  Sender: FDA-Public Use
  Company Number: US-ASTRAZENECA-2014SE12303

PATIENT
  Age: 70 Year
  Sex: Female
  Weight: 68 kg

DRUGS (9)
  1. TOPROL-XL [Suspect]
     Indication: HYPERTENSION
     Route: 048
     Dates: start: 2003
  2. TOPROL-XL [Suspect]
     Indication: HYPERTENSION
     Route: 048
  3. TOPROL-XL [Suspect]
     Indication: HYPERTENSION
     Route: 048
  4. HYDROCHLORTHIAZIDE [Suspect]
     Indication: POLYURIA
     Route: 065
  5. AMOXICILLIN [Suspect]
     Route: 065
  6. VASOTEC [Suspect]
     Route: 065
     Dates: start: 2006
  7. CEPHALOSPORIN [Suspect]
     Route: 065
  8. DIOVAN [Concomitant]
     Indication: HYPERTENSION
     Dates: start: 2007
  9. AZACOL [Concomitant]
     Indication: COLITIS
     Dosage: 800 MG, DAILY OR BID AS NEEDED.
     Dates: start: 2006

REACTIONS (9)
  - Myocardial infarction [Unknown]
  - Body height decreased [Unknown]
  - Drug hypersensitivity [Unknown]
  - Pollakiuria [Unknown]
  - Colitis [Unknown]
  - Joint swelling [Unknown]
  - Swelling [Unknown]
  - Palpitations [Unknown]
  - Dizziness [Unknown]
